FAERS Safety Report 5532246-3 (Version None)
Quarter: 2007Q4

REPORT INFORMATION
  Report Type: 
  Country: None (occurrence: None)
  Receive Date: 20071129
  Receipt Date: 20071129
  Transmission Date: 20080405
  Serious: Yes (Hospitalization)
  Sender: FDA-Public Use
  Company Number: None

PATIENT
  Sex: Male
  Weight: 50.1 kg

DRUGS (3)
  1. FLUOROURACIL [Suspect]
     Indication: HYPOPHARYNGEAL CANCER
     Dosage: 600MG/M2 IV QD 5DAYS
     Route: 042
     Dates: start: 20071104, end: 20071109
  2. HYDREA [Suspect]
     Indication: HYPOPHARYNGEAL CANCER
     Dosage: 500MG PO BID
     Route: 048
     Dates: start: 20071104, end: 20071109
  3. CETUXIMAB [Suspect]
     Indication: HYPOPHARYNGEAL CANCER
     Dosage: 250MG/M2 IV QWEEK
     Route: 042
     Dates: start: 20071113

REACTIONS (4)
  - ATELECTASIS [None]
  - BAND NEUTROPHIL COUNT INCREASED [None]
  - LUNG CONSOLIDATION [None]
  - STAPHYLOCOCCAL INFECTION [None]
